FAERS Safety Report 4421140-7 (Version None)
Quarter: 2004Q3

REPORT INFORMATION
  Report Type: 
  Country: None (occurrence: None)
  Receive Date: 20040804
  Receipt Date: 20021025
  Transmission Date: 20050211
  Serious: No
  Sender: FDA-Public Use
  Company Number: 2002AP03691

PATIENT
  Age: 31 Year
  Sex: Female

DRUGS (4)
  1. PROPOFOL [Suspect]
     Dosage: 30-125 MCG MIN KG
  2. ATENOLOL [Concomitant]
  3. ASPIRIN [Concomitant]
  4. ORAL CONTRACEPTIVES [Concomitant]

REACTIONS (4)
  - ANAESTHETIC COMPLICATION [None]
  - CARDIAC PROCEDURE COMPLICATION [None]
  - METABOLIC ACIDOSIS [None]
  - PCO2 DECREASED [None]
